FAERS Safety Report 23478997 (Version 6)
Quarter: 2025Q1

REPORT INFORMATION
  Report Type: Spontaneous
  Country: US (occurrence: US)
  Receive Date: 20240205
  Receipt Date: 20250110
  Transmission Date: 20250408
  Serious: Yes (Other)
  Sender: BRISTOL-MYERS SQUIBB COMPANY
  Company Number: US-BRISTOL-MYERS SQUIBB COMPANY-2024-015533

PATIENT
  Age: 60 Year
  Sex: Female

DRUGS (3)
  1. REVLIMID [Suspect]
     Active Substance: LENALIDOMIDE
     Indication: Plasma cell myeloma
     Dosage: DAILY FOR 21 DAYS ON AND 7 DAYS OFF
     Route: 048
  2. REVLIMID [Suspect]
     Active Substance: LENALIDOMIDE
     Route: 048
  3. REVLIMID [Suspect]
     Active Substance: LENALIDOMIDE
     Dosage: QD FOR 21 DAYS ON THEN 7 DAYS OFF
     Route: 048

REACTIONS (12)
  - Rash [Unknown]
  - Vascular occlusion [Recovered/Resolved]
  - Somnolence [Unknown]
  - Nervousness [Unknown]
  - Nausea [Unknown]
  - Eye discharge [Unknown]
  - Decreased appetite [Unknown]
  - Insomnia [Unknown]
  - Pruritus [Unknown]
  - Hordeolum [Recovered/Resolved]
  - Infective scleritis [Unknown]
  - Hyperkeratosis [Unknown]
